FAERS Safety Report 6262325-7 (Version None)
Quarter: 2009Q3

REPORT INFORMATION
  Report Type: 
  Country: None (occurrence: None)
  Receive Date: 20090709
  Receipt Date: 20090701
  Transmission Date: 20100115
  Serious: Yes (Hospitalization)
  Sender: FDA-Public Use
  Company Number: PHHO2009DE08427

PATIENT
  Sex: Male
  Weight: 102.5 kg

DRUGS (5)
  1. ALISKIREN ALI+TAB+HT [Suspect]
     Indication: HYPERTENSION
     Dosage: 300 MG, QD
     Route: 048
     Dates: start: 20090603, end: 20090622
  2. CANDESARTAN COMP-CAN+ [Suspect]
     Indication: HYPERTENSION
     Dosage: UNK
     Route: 048
     Dates: start: 20090603, end: 20090622
  3. CANDESARTAN COMP-CAN+ [Suspect]
     Dosage: 32 MG, QD
     Route: 048
  4. HYDROCHLOROTHIAZIDE T08766+TAB [Suspect]
     Indication: HYPERTENSION
     Dosage: 25 MG, QD
     Route: 048
     Dates: start: 20090603
  5. HYDROCHLOROTHIAZIDE T08766+TAB [Suspect]
     Dosage: 25 MG, QD
     Route: 048
     Dates: end: 20090622

REACTIONS (4)
  - COLITIS ISCHAEMIC [None]
  - DIARRHOEA [None]
  - ENTEROCOLITIS HAEMORRHAGIC [None]
  - HAEMATOCHEZIA [None]
